FAERS Safety Report 5844498-0 (Version None)
Quarter: 2008Q3

REPORT INFORMATION
  Report Type: 
  Country: None (occurrence: None)
  Receive Date: 20080811
  Receipt Date: 20080731
  Transmission Date: 20090109
  Serious: Yes (Death, Other)
  Sender: FDA-Public Use
  Company Number: 2006JP003503

PATIENT
  Age: 64 Year
  Sex: Female
  Weight: 42 kg

DRUGS (9)
  1. TACROLIMUS [Suspect]
     Indication: RHEUMATOID ARTHRITIS
     Dosage: 1.5 MG, /D, ORAL; 2 MG, /D, ORAL
     Route: 048
     Dates: start: 20050608, end: 20060719
  2. TACROLIMUS [Suspect]
     Indication: RHEUMATOID ARTHRITIS
     Dosage: 1.5 MG, /D, ORAL; 2 MG, /D, ORAL
     Route: 048
     Dates: start: 20050720, end: 20080510
  3. PREDNISOLONE [Suspect]
     Indication: RHEUMATOID ARTHRITIS
     Dosage: 5 MG, /D, ORAL; 3 MG, /D, ORAL
     Route: 048
  4. METHOTREXATE [Concomitant]
  5. ETODOLAC [Concomitant]
  6. DORNER (BERAPROST SODIUM) TABLET [Concomitant]
  7. GASTER D [Concomitant]
  8. LANSOPRAZOLE [Concomitant]
  9. BONALON (ALENDRONIC ACID) [Concomitant]

REACTIONS (4)
  - BETA-N-ACETYL-D-GLUCOSAMINIDASE INCREASED [None]
  - INFECTION [None]
  - PNEUMONIA [None]
  - STREPTOCOCCAL INFECTION [None]
